FAERS Safety Report 7486732-X (Version None)
Quarter: 2011Q2

REPORT INFORMATION
  Report Type: 
  Country: None (occurrence: None)
  Receive Date: 20110517
  Receipt Date: 20100604
  Transmission Date: 20111010
  Serious: No
  Sender: FDA-Public Use
  Company Number: US-NOVEN-ALL1-2010-03208

PATIENT

DRUGS (4)
  1. INTUNIV [Suspect]
     Dosage: UNK INC TITRATION DOSING
     Route: 048
     Dates: start: 20100101
  2. DAYTRANA [Suspect]
     Dosage: UNK MG, UNKNOWN
     Route: 062
  3. FOCALIN [Concomitant]
     Dosage: UNK MG, UNKNOWN
     Route: 048
  4. INTUNIV [Suspect]
     Dosage: UNK MG, 1X/DAY:QD
     Route: 048
     Dates: start: 20100101, end: 20100101

REACTIONS (2)
  - SOMNAMBULISM [None]
  - SLEEP TALKING [None]
